FAERS Safety Report 21204998 (Version 1)
Quarter: 2022Q3

REPORT INFORMATION
  Report Type: Other
  Country: None (occurrence: US)
  Receive Date: 20220812
  Receipt Date: 20220812
  Transmission Date: 20221026
  Serious: No
  Sender: FDA-Public Use
  Company Number: US-Ascent Pharmaceuticals, Inc.-2131762

PATIENT

DRUGS (1)
  1. DEXTROAMPHET SACCHARAT, AMPHET ASPARTATE, DEXTROAMPHET SULFATE AND AMP [Suspect]
     Active Substance: AMPHETAMINE ASPARTATE\AMPHETAMINE SULFATE\DEXTROAMPHETAMINE SACCHARATE\DEXTROAMPHETAMINE SULFATE
     Indication: Product used for unknown indication
     Route: 048

REACTIONS (13)
  - Migraine [Unknown]
  - Photophobia [Unknown]
  - Depression [Unknown]
  - Head discomfort [Unknown]
  - Visual acuity reduced [Unknown]
  - Disturbance in attention [Unknown]
  - Nausea [Unknown]
  - Anxiety [Unknown]
  - Hyperhidrosis [Unknown]
  - Irritability [Unknown]
  - Muscle twitching [Unknown]
  - Product quality issue [Unknown]
  - Product substitution issue [Unknown]
